FAERS Safety Report 18477225 (Version 1)
Quarter: 2020Q4

REPORT INFORMATION
  Report Type: Spontaneous
  Country: GB (occurrence: GB)
  Receive Date: 20201107
  Receipt Date: 20201107
  Transmission Date: 20210114
  Serious: Yes (Other)
  Sender: FDA-Public Use
  Company Number: GB-TEVA-2020-GB-1844980

PATIENT
  Age: 50 Year
  Sex: Female
  Weight: 71 kg

DRUGS (7)
  1. LEVOTHYROXINE. [Concomitant]
     Active Substance: LEVOTHYROXINE
     Dosage: 1 DOSAGE FORMS
     Dates: start: 20170708
  2. FERROUS FUMARATE [Concomitant]
     Active Substance: FERROUS FUMARATE
     Dosage: 3 DOSAGE FORMS
     Dates: start: 20200228, end: 20200729
  3. PROPRANOLOL [Concomitant]
     Active Substance: PROPRANOLOL HYDROCHLORIDE
     Dosage: 4 DOSAGE FORMS
     Dates: start: 20161205, end: 20200729
  4. ATORVASTATIN [Suspect]
     Active Substance: ATORVASTATIN
     Dosage: 20 MG
     Route: 065
     Dates: start: 20200116
  5. LANSOPRAZOLE. [Concomitant]
     Active Substance: LANSOPRAZOLE
     Dosage: 2 DOSAGE FORMS
     Dates: start: 20181107, end: 20201006
  6. FENBID [Concomitant]
     Active Substance: IBUPROFEN
     Dosage: APPLY, 3 DOSAGE FORMS
     Dates: start: 20200506
  7. BETAMETHASONE VALERATE. [Concomitant]
     Active Substance: BETAMETHASONE VALERATE
     Dosage: POTENCY: POTENT. APPLY ONCE OR TWICE A DAY.
     Dates: start: 20200714, end: 20200811

REACTIONS (3)
  - Intraocular pressure increased [Recovered/Resolved]
  - Headache [Recovered/Resolved]
  - Narrow anterior chamber angle [Recovered/Resolved]

NARRATIVE: CASE EVENT DATE: 20200203
